FAERS Safety Report 7907328-9 (Version None)
Quarter: 2011Q4

REPORT INFORMATION
  Report Type: 
  Country: None (occurrence: None)
  Receive Date: 20111110
  Receipt Date: 20111102
  Transmission Date: 20120403
  Serious: Yes (Other)
  Sender: FDA-Public Use
  Company Number: JP-GLAXOSMITHKLINE-B0755579A

PATIENT
  Sex: Female

DRUGS (5)
  1. HALCION [Concomitant]
     Indication: INSOMNIA
     Route: 048
     Dates: start: 20111001
  2. LAMICTAL [Suspect]
     Indication: BIPOLAR DISORDER
     Dosage: 25MG PER DAY
     Route: 048
     Dates: start: 20110929, end: 20111010
  3. PAXIL [Concomitant]
     Indication: DEPRESSION
     Dosage: 1IUAX PER DAY
     Route: 048
     Dates: start: 20091118
  4. SEROQUEL [Concomitant]
     Indication: DEPRESSION
     Dosage: 1IUAX PER DAY
     Route: 048
     Dates: start: 20110701
  5. BUFFERIN [Concomitant]
     Route: 048

REACTIONS (2)
  - WHITE BLOOD CELL COUNT DECREASED [None]
  - PYREXIA [None]
